FAERS Safety Report 13219694 (Version 1)
Quarter: 2017Q1

REPORT INFORMATION
  Report Type: Spontaneous
  Country: US (occurrence: US)
  Receive Date: 20170210
  Receipt Date: 20170210
  Transmission Date: 20170428
  Serious: Yes (Hospitalization)
  Sender: FDA-Public Use
  Company Number: US-B.I. PHARMACEUTICALS,INC./RIDGEFIELD-2017-BI-006730

PATIENT
  Age: 51 Year
  Sex: Female
  Weight: 88 kg

DRUGS (1)
  1. COMBIVENT [Suspect]
     Active Substance: ALBUTEROL SULFATE\IPRATROPIUM BROMIDE
     Indication: ASTHMA
     Dosage: FORM STRENGTH: 18 MCG / 103 MCG; UNIT DOSE: 36MCG/ 206 MCG; 2 INHALATIONS EVERY 4-6 HOURS AS NEEDED;
     Route: 055
     Dates: start: 1996, end: 2011

REACTIONS (5)
  - Chronic obstructive pulmonary disease [Recovered/Resolved]
  - Myocardial infarction [Recovered/Resolved]
  - Lung disorder [Not Recovered/Not Resolved]
  - Off label use [Recovered/Resolved]
  - Nasopharyngitis [Not Recovered/Not Resolved]

NARRATIVE: CASE EVENT DATE: 1996
